FAERS Safety Report 11741680 (Version 1)
Quarter: 2015Q4

REPORT INFORMATION
  Report Type: Spontaneous
  Country: US (occurrence: None)
  Receive Date: 20151113
  Receipt Date: 20151113
  Transmission Date: 20160304
  Serious: Yes (Disabling)
  Sender: FDA-Public Use
  Company Number: None

PATIENT
  Age: 70 Year
  Sex: Female
  Weight: 59.88 kg

DRUGS (8)
  1. THYROID [Concomitant]
     Active Substance: LEVOTHYROXINE\LIOTHYRONINE
  2. VITAMIN B12 [Concomitant]
     Active Substance: CYANOCOBALAMIN
  3. MAGNESIUM [Concomitant]
     Active Substance: MAGNESIUM
  4. VITAMIN D [Concomitant]
     Active Substance: CHOLECALCIFEROL
  5. LEXISCAN [Suspect]
     Active Substance: REGADENOSON
     Indication: CARDIAC STRESS TEST
     Dates: start: 20151103
  6. CARVEDILOL. [Concomitant]
     Active Substance: CARVEDILOL
  7. VITAMIN C [Concomitant]
     Active Substance: ASCORBIC ACID
  8. CARDIOLITE [Suspect]
     Active Substance: TECHNETIUM TC-99M SESTAMIBI\TETRAKIS(2-METHOXYISOBUTYLISOCYANIDE)COPPER(I) TETRAFLUOROBORATE
     Indication: CARDIAC STRESS TEST

REACTIONS (8)
  - Pelvic pain [None]
  - Headache [None]
  - Musculoskeletal pain [None]
  - Malaise [None]
  - Neck pain [None]
  - Pain in jaw [None]
  - Gastrointestinal pain [None]
  - Dyspnoea [None]

NARRATIVE: CASE EVENT DATE: 20151103
